FAERS Safety Report 8355594-0 (Version None)
Quarter: 2012Q2

REPORT INFORMATION
  Report Type: 
  Country: None (occurrence: None)
  Receive Date: 20120514
  Receipt Date: 20120508
  Transmission Date: 20120825
  Serious: Yes (Hospitalization)
  Sender: FDA-Public Use
  Company Number: CH-AMGEN-CHESP2012024307

PATIENT
  Age: 76 Year
  Sex: Female

DRUGS (3)
  1. SIMVASTATIN [Concomitant]
     Indication: BLOOD CHOLESTEROL INCREASED
     Dosage: 40 MG, QD
     Route: 048
     Dates: start: 20110531
  2. CALCIUM D3                         /00944201/ [Concomitant]
     Dosage: 500 UNK, UNK
     Route: 048
     Dates: start: 20070101
  3. PROLIA [Suspect]
     Indication: OSTEOPOROSIS
     Dosage: 60 MG, Q6MO
     Route: 058
     Dates: start: 20111109, end: 20120425

REACTIONS (8)
  - NORMOCHROMIC NORMOCYTIC ANAEMIA [None]
  - HERPES ZOSTER [None]
  - URINARY TRACT INFECTION [None]
  - THROMBOCYTOSIS [None]
  - OSTEOARTHRITIS [None]
  - CARDIOVASCULAR DISORDER [None]
  - IIIRD NERVE PARESIS [None]
  - POST HERPETIC NEURALGIA [None]
